FAERS Safety Report 17372343 (Version 1)
Quarter: 2020Q1

REPORT INFORMATION
  Report Type: Spontaneous
  Country: BR (occurrence: BR)
  Receive Date: 20200205
  Receipt Date: 20200205
  Transmission Date: 20200409
  Serious: Yes (Congenital Anomaly, Other)
  Sender: FDA-Public Use
  Company Number: BR-GLAXOSMITHKLINE-BR2019AMR239492

PATIENT
  Age: 9 Year
  Sex: Female

DRUGS (1)
  1. NEOTIGASON [Suspect]
     Active Substance: ACITRETIN
     Indication: ICHTHYOSIS
     Dosage: 10 MG, QD
     Route: 048
     Dates: start: 2014

REACTIONS (3)
  - Product availability issue [Unknown]
  - Ichthyosis [Not Recovered/Not Resolved]
  - Skin exfoliation [Unknown]
